FAERS Safety Report 25472456 (Version 1)
Quarter: 2025Q2

REPORT INFORMATION
  Report Type: Spontaneous
  Country: US (occurrence: US)
  Receive Date: 20250624
  Receipt Date: 20250624
  Transmission Date: 20250716
  Serious: No
  Sender: TAKEDA
  Company Number: US-TAKEDA-2025TUS053884

PATIENT
  Sex: Female
  Weight: 50 kg

DRUGS (3)
  1. ENTYVIO [Suspect]
     Active Substance: VEDOLIZUMAB
     Indication: Colitis ulcerative
     Dosage: 108 MILLIGRAMS, Q2WEEKS
     Dates: start: 20250331
  2. ENTYVIO [Suspect]
     Active Substance: VEDOLIZUMAB
  3. LIALDA [Concomitant]
     Active Substance: MESALAMINE

REACTIONS (3)
  - No adverse event [Unknown]
  - Device leakage [Unknown]
  - Incorrect dose administered by device [Unknown]
